FAERS Safety Report 7372902-8 (Version None)
Quarter: 2011Q1

REPORT INFORMATION
  Report Type: 
  Country: None (occurrence: None)
  Receive Date: 20110324
  Receipt Date: 20110317
  Transmission Date: 20110831
  Serious: Yes (Death, Life-Threatening)
  Sender: FDA-Public Use
  Company Number: JP-PFIZER INC-2011052296

PATIENT
  Age: 79 Year
  Sex: Male
  Weight: 40 kg

DRUGS (11)
  1. MICAFUNGIN [Suspect]
     Indication: PNEUMONIA
     Dosage: 150 MG /DAY
     Route: 042
     Dates: start: 20110222, end: 20110302
  2. BAKTAR [Concomitant]
     Indication: PROPHYLAXIS
     Dosage: 2 MG/DAY
     Route: 048
     Dates: start: 20110225, end: 20110302
  3. UNASYN [Suspect]
     Indication: PNEUMONIA
     Dosage: 3 G/DAY
     Route: 042
     Dates: start: 20110217, end: 20110221
  4. ELEMENMIC [Concomitant]
     Dosage: 1 A/DAY
     Route: 042
     Dates: start: 20110226, end: 20110302
  5. CIPROFLOXACIN HCL [Suspect]
     Indication: PNEUMONIA
     Dosage: 300 MG/DAY
     Route: 042
     Dates: start: 20110221, end: 20110225
  6. ELASPOL [Suspect]
     Dosage: 300 MG/DAY
     Route: 042
     Dates: start: 20110222, end: 20110228
  7. FULCALIQ [Concomitant]
     Dosage: 1003 ML/DAY
     Route: 041
     Dates: start: 20110222, end: 20110302
  8. ZOSYN [Suspect]
     Indication: PNEUMONIA
     Dosage: 4.5 G, 4X/DAY
     Route: 041
     Dates: start: 20110226, end: 20110302
  9. OMEGACIN [Suspect]
     Indication: PNEUMONIA
     Dosage: 0.6 G/DAY
     Route: 042
     Dates: start: 20110220, end: 20110225
  10. NEOPHAGEN [Concomitant]
     Dosage: 40 ML PER DAY
     Dates: start: 20110228
  11. GASTER [Concomitant]
     Indication: PROPHYLAXIS
     Dosage: 2A/DAY
     Route: 042
     Dates: start: 20110222, end: 20110302

REACTIONS (3)
  - PNEUMONIA [None]
  - DISSEMINATED INTRAVASCULAR COAGULATION [None]
  - HEPATIC FUNCTION ABNORMAL [None]
